FAERS Safety Report 24288855 (Version 5)
Quarter: 2024Q4

REPORT INFORMATION
  Report Type: Report from Study
  Country: GB (occurrence: GB)
  Receive Date: 20240906
  Receipt Date: 20241001
  Transmission Date: 20250114
  Serious: Yes (Hospitalization)
  Sender: ABBVIE
  Company Number: GB-ABBVIE-5901654

PATIENT
  Age: 67 Year
  Sex: Male

DRUGS (1)
  1. VENETOCLAX [Suspect]
     Active Substance: VENETOCLAX
     Indication: Chronic lymphocytic leukaemia
     Route: 048

REACTIONS (9)
  - Infection [Recovering/Resolving]
  - Jaundice [Recovered/Resolved]
  - Dizziness [Recovering/Resolving]
  - Fatigue [Recovering/Resolving]
  - Dyspnoea [Recovering/Resolving]
  - Haemoglobin decreased [Recovered/Resolved]
  - Oedema peripheral [Recovering/Resolving]
  - Stress [Unknown]
  - Tremor [Unknown]
